FAERS Safety Report 5259412-9 (Version None)
Quarter: 2007Q1

REPORT INFORMATION
  Report Type: 
  Country: None (occurrence: None)
  Receive Date: 20070305
  Receipt Date: 20070223
  Transmission Date: 20070707
  Serious: Yes (Other)
  Sender: FDA-Public Use
  Company Number: 2007SS000011

PATIENT
  Age: 15 Year
  Sex: Male
  Weight: 68.0396 kg

DRUGS (5)
  1. MYOBLOC [Suspect]
     Indication: MUSCLE SPASTICITY
     Dosage: 5000 UNITS; IM
     Route: 030
     Dates: start: 20070223, end: 20070223
  2. MYOBLOC [Suspect]
     Indication: OFF LABEL USE
     Dosage: 5000 UNITS; IM
     Route: 030
     Dates: start: 20070223, end: 20070223
  3. BACLOFEN [Concomitant]
  4. TRILEPTAL [Concomitant]
  5. ZONEGRAN [Concomitant]

REACTIONS (2)
  - ANXIETY [None]
  - CHEST PAIN [None]
